FAERS Safety Report 7104263-3 (Version None)
Quarter: 2010Q4

REPORT INFORMATION
  Report Type: 
  Country: None (occurrence: None)
  Receive Date: 20101115
  Receipt Date: 20100614
  Transmission Date: 20110411
  Serious: Yes (Hospitalization)
  Sender: FDA-Public Use
  Company Number: US-ALLERGAN-1007770US

PATIENT
  Age: 2 Year
  Sex: Female
  Weight: 11.3 kg

DRUGS (1)
  1. BOTOXA? [Suspect]
     Indication: SALIVARY HYPERSECRETION
     Dosage: 200 UNITS, SINGLE
     Route: 065

REACTIONS (2)
  - BOTULISM [None]
  - DRUG TOXICITY [None]
